FAERS Safety Report 17664935 (Version 2)
Quarter: 2020Q2

REPORT INFORMATION
  Report Type: Spontaneous
  Country: US (occurrence: US)
  Receive Date: 20200414
  Receipt Date: 20200616
  Transmission Date: 20200713
  Serious: No
  Sender: FDA-Public Use
  Company Number: US-PFIZER INC-2019562987

PATIENT
  Age: 61 Year
  Sex: Female
  Weight: 88.44 kg

DRUGS (4)
  1. ZARXIO [Concomitant]
     Active Substance: FILGRASTIM-SNDZ
     Dosage: UNK
  2. IBRANCE [Suspect]
     Active Substance: PALBOCICLIB
     Dosage: 100 MG, CYCLIC (1 DAILY FOR 21 DAYS)
     Route: 048
     Dates: start: 20200107
  3. IBRANCE [Suspect]
     Active Substance: PALBOCICLIB
     Indication: BREAST CANCER FEMALE
     Dosage: UNK
  4. XGEVA [Concomitant]
     Active Substance: DENOSUMAB
     Dosage: UNK

REACTIONS (3)
  - White blood cell count abnormal [Unknown]
  - Weight increased [Unknown]
  - Taste disorder [Unknown]
